FAERS Safety Report 8388472-1 (Version None)
Quarter: 2012Q2

REPORT INFORMATION
  Report Type: 
  Country: None (occurrence: None)
  Receive Date: 20120525
  Receipt Date: 20120518
  Transmission Date: 20120825
  Serious: Yes (Other)
  Sender: FDA-Public Use
  Company Number: US-FRI-1000025152

PATIENT
  Sex: Female

DRUGS (1)
  1. CELEXA [Suspect]
     Indication: DEPRESSION
     Dosage: 60 MG
     Route: 048
     Dates: start: 20000926, end: 20020301

REACTIONS (4)
  - MATERNAL EXPOSURE DURING PREGNANCY [None]
  - CARDIOMYOPATHY [None]
  - OVERDOSE [None]
  - HYPERTENSION [None]
